FAERS Safety Report 6667524-8 (Version None)
Quarter: 2010Q2

REPORT INFORMATION
  Report Type: 
  Country: None (occurrence: None)
  Receive Date: 20100405
  Receipt Date: 20100331
  Transmission Date: 20101027
  Serious: Yes (Life-Threatening, Disabling)
  Sender: FDA-Public Use
  Company Number: CN-ROCHE-694655

PATIENT
  Sex: Male
  Weight: 62 kg

DRUGS (4)
  1. BLINDED TOCILIZUMAB [Suspect]
     Indication: RHEUMATOID ARTHRITIS
     Dosage: DOSE BLINDED
     Route: 042
     Dates: start: 20090427, end: 20090914
  2. TOCILIZUMAB [Suspect]
     Indication: RHEUMATOID ARTHRITIS
     Dosage: LAST DOSE PRIOR TO SAE: 5 MARCH 2010
     Route: 042
     Dates: start: 20091012
  3. METHOTREXATE [Concomitant]
     Dates: start: 20080409
  4. FOLIC ACID [Concomitant]
     Dates: start: 20080410

REACTIONS (1)
  - LUNG NEOPLASM MALIGNANT [None]
